FAERS Safety Report 9671687 (Version 1)
Quarter: 2013Q4

REPORT INFORMATION
  Report Type: Spontaneous
  Country: US (occurrence: None)
  Receive Date: 20131105
  Receipt Date: 20131105
  Transmission Date: 20140711
  Serious: Yes (Other)
  Sender: FDA-Public Use
  Company Number: None

PATIENT
  Age: 43 Year
  Sex: Male
  Weight: 78.8 kg

DRUGS (10)
  1. VANCOMYCIN [Suspect]
     Indication: OSTEOMYELITIS
     Route: 042
     Dates: start: 20130919, end: 20131003
  2. HEPARIN [Concomitant]
  3. ASCORBIC ACID [Concomitant]
  4. ZINC SULFATE [Concomitant]
  5. ZOLPIDEM [Concomitant]
  6. BISACODYL [Concomitant]
  7. IBUPROFEN [Concomitant]
  8. DIPHENHYDRAMINE [Concomitant]
  9. METOCLOPRAMIDE [Concomitant]
  10. ONDANSETRON [Concomitant]

REACTIONS (2)
  - Neutropenia [None]
  - Leukopenia [None]
